FAERS Safety Report 15327140 (Version 1)
Quarter: 2018Q3

REPORT INFORMATION
  Report Type: Spontaneous
  Country: AU (occurrence: AU)
  Receive Date: 20180828
  Receipt Date: 20180828
  Transmission Date: 20181010
  Serious: Yes (Death, Life-Threatening, Other)
  Sender: FDA-Public Use
  Company Number: AU-BAYER-2018-157272

PATIENT
  Age: 52 Year
  Sex: Female

DRUGS (3)
  1. TENECTEPLASE [Interacting]
     Active Substance: TENECTEPLASE
     Dosage: UNK
  2. CLOPIDOGREL [Interacting]
     Active Substance: CLOPIDOGREL BISULFATE
     Dosage: UNK
  3. ACETYLSALICYLIC ACID({=100 MG) [Suspect]
     Active Substance: ASPIRIN
     Dosage: UNK

REACTIONS (5)
  - Aortic rupture [Fatal]
  - Aortic intramural haematoma [None]
  - Post procedural haemorrhage [None]
  - Aortic dissection [None]
  - Labelled drug-drug interaction medication error [None]
